FAERS Safety Report 11395498 (Version 1)
Quarter: 2015Q3

REPORT INFORMATION
  Report Type: Spontaneous
  Country: US (occurrence: US)
  Receive Date: 20150819
  Receipt Date: 20150819
  Transmission Date: 20151125
  Serious: No
  Sender: FDA-Public Use
  Company Number: US-PFIZER INC-2015175898

PATIENT
  Sex: Male

DRUGS (1)
  1. IBRANCE [Suspect]
     Active Substance: PALBOCICLIB
     Dosage: UNK, CYCLIC (3 WEEKS ON/1 WEEK OFF)

REACTIONS (2)
  - Rash [Unknown]
  - Product use issue [Unknown]
